FAERS Safety Report 9201322 (Version 2)
Quarter: 2013Q3

REPORT INFORMATION
  Report Type: Report from Study
  Country: US (occurrence: US)
  Receive Date: 20130401
  Receipt Date: 20130702
  Transmission Date: 20140515
  Serious: Yes (Death)
  Sender: FDA-Public Use
  Company Number: US-ASTELLAS-2013US003417

PATIENT
  Age: 61 Year
  Sex: Female

DRUGS (3)
  1. ERLOTINIB TABLET [Suspect]
     Indication: PANCREATIC CARCINOMA
     Dosage: 100 MG, UID/QD
     Route: 048
     Dates: start: 20120531, end: 20121210
  2. GEMZAR [Concomitant]
     Indication: PANCREATIC CARCINOMA
     Dosage: 1800 MG, WEEKLY
     Route: 042
     Dates: start: 20120509, end: 20130314
  3. ABRAXANE [Concomitant]
     Indication: PANCREATIC CARCINOMA
     Dosage: 100 MG, WEEKLY
     Route: 042
     Dates: start: 20121210, end: 20130314

REACTIONS (2)
  - Cardio-respiratory arrest [Fatal]
  - Malignant neoplasm progression [Fatal]
